FAERS Safety Report 23644339 (Version 1)
Quarter: 2024Q1

REPORT INFORMATION
  Report Type: Spontaneous
  Country: CN (occurrence: CN)
  Receive Date: 20240318
  Receipt Date: 20240318
  Transmission Date: 20240409
  Serious: Yes (Hospitalization, Other)
  Sender: FDA-Public Use
  Company Number: CN-PFIZER INC-PV202400035600

PATIENT
  Age: 81 Year
  Sex: Female

DRUGS (1)
  1. LINEZOLID [Suspect]
     Active Substance: LINEZOLID
     Indication: Pneumonia streptococcal
     Dosage: 0.6 G, 2X/DAY
     Route: 041
     Dates: start: 20240116, end: 20240122

REACTIONS (4)
  - Platelet count decreased [Recovering/Resolving]
  - Gastrointestinal haemorrhage [Unknown]
  - Gastric occult blood positive [Unknown]
  - Occult blood positive [Unknown]

NARRATIVE: CASE EVENT DATE: 20240118
